FAERS Safety Report 14536714 (Version 1)
Quarter: 2018Q1

REPORT INFORMATION
  Report Type: Spontaneous
  Country: US (occurrence: US)
  Receive Date: 20180215
  Receipt Date: 20180215
  Transmission Date: 20180509
  Serious: Yes (Hospitalization)
  Sender: FDA-Public Use
  Company Number: None

PATIENT
  Age: 85 Year
  Sex: Male
  Weight: 68.5 kg

DRUGS (5)
  1. PROSCAR [Concomitant]
     Active Substance: FINASTERIDE
  2. WARFARIN [Suspect]
     Active Substance: WARFARIN
     Indication: ATRIAL FIBRILLATION
     Dosage: NIGHTLY
     Route: 048
  3. CELEXA [Concomitant]
     Active Substance: CITALOPRAM HYDROBROMIDE
  4. TRANXENE [Concomitant]
     Active Substance: CLORAZEPATE DIPOTASSIUM
  5. PULMICORT TURBUHALER [Concomitant]
     Active Substance: BUDESONIDE

REACTIONS (6)
  - Haemoptysis [None]
  - Epistaxis [None]
  - Decreased appetite [None]
  - Weight decreased [None]
  - Respiratory failure [None]
  - International normalised ratio increased [None]

NARRATIVE: CASE EVENT DATE: 20170616
